FAERS Safety Report 4649430-3 (Version None)
Quarter: 2005Q2

REPORT INFORMATION
  Report Type: 
  Country: None (occurrence: None)
  Receive Date: 20050427
  Receipt Date: 20050414
  Transmission Date: 20051028
  Serious: Yes (Hospitalization, Other)
  Sender: FDA-Public Use
  Company Number: 2005062056

PATIENT
  Sex: Male

DRUGS (5)
  1. ZYRTEC [Suspect]
     Indication: ASTHMA
  2. ZYRTEC [Suspect]
     Indication: HYPERSENSITIVITY
  3. FLUTICASONE PROPIONATE [Concomitant]
  4. MONTELUKAST (MONTELUKAST) [Concomitant]
  5. SALBUTAMOL (SALBUTAMOL) [Concomitant]

REACTIONS (2)
  - CARDIAC MURMUR [None]
  - RESPIRATORY SYNCYTIAL VIRUS INFECTION [None]
